FAERS Safety Report 5335884-6 (Version None)
Quarter: 2007Q2

REPORT INFORMATION
  Report Type: 
  Country: None (occurrence: None)
  Receive Date: 20070301
  Receipt Date: 20060526
  Transmission Date: 20071010
  Serious: Yes (Other)
  Sender: FDA-Public Use
  Company Number: 225480

PATIENT
  Age: 14 Year
  Sex: Male

DRUGS (1)
  1. NUTROPIN AQ [Suspect]
     Indication: GROWTH HORMONE DEFICIENCY
     Dosage: 3 MG, QD, SUBCUTANEOUS
     Route: 058
     Dates: start: 20060320, end: 20060512

REACTIONS (1)
  - INTRACRANIAL PRESSURE INCREASED [None]
